FAERS Safety Report 23817024 (Version 1)
Quarter: 2024Q2

REPORT INFORMATION
  Report Type: Other
  Country: FR (occurrence: FR)
  Receive Date: 20240504
  Receipt Date: 20240504
  Transmission Date: 20240716
  Serious: Yes (Other)
  Sender: FDA-Public Use
  Company Number: None

PATIENT

DRUGS (3)
  1. OLANZAPINE [Suspect]
     Active Substance: OLANZAPINE
     Indication: Product used for unknown indication
     Dosage: UNK
     Route: 065
  2. MIDOMAFETAMINE [Suspect]
     Active Substance: MIDOMAFETAMINE
     Indication: Product used for unknown indication
     Dosage: UNK
     Route: 065
  3. CANNABIS SATIVA SUBSP. INDICA TOP [Suspect]
     Active Substance: CANNABIS SATIVA SUBSP. INDICA TOP
     Indication: Product used for unknown indication
     Dosage: UNK
     Route: 065

REACTIONS (5)
  - Tonic clonic movements [Recovered/Resolved]
  - Suicidal ideation [Unknown]
  - Anxiety [Recovered/Resolved]
  - Somnolence [Recovered/Resolved]
  - Substance use disorder [Unknown]

NARRATIVE: CASE EVENT DATE: 20230919
